FAERS Safety Report 21926744 (Version 1)
Quarter: 2023Q1

REPORT INFORMATION
  Report Type: Spontaneous
  Country: US (occurrence: US)
  Receive Date: 20230130
  Receipt Date: 20230130
  Transmission Date: 20230417
  Serious: No
  Sender: FDA-Public Use
  Company Number: US-GALDERMA-US2021020238

PATIENT

DRUGS (1)
  1. DESOWEN [Suspect]
     Active Substance: DESONIDE
     Indication: Haemorrhoids
     Dosage: 1 DOSAGE FORM
     Route: 061

REACTIONS (1)
  - Intentional product use issue [Recovered/Resolved]
